FAERS Safety Report 21683020 (Version 1)
Quarter: 2022Q4

REPORT INFORMATION
  Report Type: Spontaneous
  Country: AU (occurrence: AU)
  Receive Date: 20221205
  Receipt Date: 20221205
  Transmission Date: 20230113
  Serious: Yes (Other)
  Sender: FDA-Public Use
  Company Number: AU-BAXTER-2022BAX025105

PATIENT

DRUGS (3)
  1. SODIUM CHLORIDE [Suspect]
     Active Substance: SODIUM CHLORIDE
     Indication: Medication dilution
     Dosage: UNK
     Route: 065
     Dates: start: 20221118
  2. DOCETAXEL [Suspect]
     Active Substance: DOCETAXEL
     Dosage: 153.75 MILLIGRAN (MG)
     Route: 065
     Dates: start: 20221118
  3. DEXAMETHASONE [Suspect]
     Active Substance: DEXAMETHASONE
     Dosage: 20 MILLIGRAM (MG)
     Route: 042
     Dates: start: 20221118

REACTIONS (5)
  - Adverse drug reaction [Unknown]
  - Back pain [Unknown]
  - Feeling hot [Unknown]
  - Flushing [Unknown]
  - Dyspnoea [Unknown]

NARRATIVE: CASE EVENT DATE: 20221101
